FAERS Safety Report 21838517 (Version 1)
Quarter: 2023Q1

REPORT INFORMATION
  Report Type: Spontaneous
  Country: US (occurrence: None)
  Receive Date: 20230106
  Receipt Date: 20230106
  Transmission Date: 20230417
  Serious: Yes (Other)
  Sender: FDA-Public Use
  Company Number: None

PATIENT
  Age: 50 Year
  Sex: Female
  Weight: 81 kg

DRUGS (1)
  1. ALBUTEROL [Suspect]
     Active Substance: ALBUTEROL
     Indication: Asthma
     Dosage: FREQUENCY : EVERY 4 HOURS;?
     Route: 055
     Dates: start: 20141201, end: 20150106

REACTIONS (3)
  - Tachycardia [None]
  - Tremor [None]
  - Exercise tolerance decreased [None]

NARRATIVE: CASE EVENT DATE: 20150106
